FAERS Safety Report 5262442-4 (Version None)
Quarter: 2007Q1

REPORT INFORMATION
  Report Type: 
  Country: None (occurrence: None)
  Receive Date: 20070312
  Receipt Date: 20070307
  Transmission Date: 20070707
  Serious: Yes (Other)
  Sender: FDA-Public Use
  Company Number: IT-AVENTIS-200711807GDDC

PATIENT
  Sex: Male

DRUGS (1)
  1. LANTUS [Suspect]
     Indication: DIABETES MELLITUS
     Dosage: DOSE: 25/30
     Route: 058

REACTIONS (6)
  - ALCOHOL USE [None]
  - DEVICE MALFUNCTION [None]
  - DIABETIC KETOACIDOSIS [None]
  - FEEDING DISORDER [None]
  - KETOSIS [None]
  - PHARMACEUTICAL PRODUCT COMPLAINT [None]
